FAERS Safety Report 16610594 (Version 1)
Quarter: 2019Q3

REPORT INFORMATION
  Report Type: Spontaneous
  Country: NZ (occurrence: NZ)
  Receive Date: 20190722
  Receipt Date: 20190722
  Transmission Date: 20191004
  Serious: Yes (Other)
  Sender: FDA-Public Use
  Company Number: NZ-MYLANLABS-2019M1044914

PATIENT
  Age: 63 Year
  Sex: Female

DRUGS (1)
  1. PAXAM 0.5 [Suspect]
     Active Substance: CLONAZEPAM
     Indication: PRODUCT USED FOR UNKNOWN INDICATION
     Dosage: 1 DOSAGE FORM, QD (QUARTER OF A TABLET 4 TIMES A DAY (ONE TABLET A DAY))

REACTIONS (8)
  - Heart rate increased [Unknown]
  - Autoimmune disorder [Unknown]
  - Product taste abnormal [Unknown]
  - Post viral fatigue syndrome [Recovering/Resolving]
  - Nausea [Unknown]
  - Dysuria [Unknown]
  - Headache [Unknown]
  - Wrong technique in product usage process [Unknown]
